FAERS Safety Report 17697648 (Version 1)
Quarter: 2020Q2

REPORT INFORMATION
  Report Type: Spontaneous
  Country: US (occurrence: US)
  Receive Date: 20200422
  Receipt Date: 20200422
  Transmission Date: 20200714
  Serious: Yes (Disabling)
  Sender: FDA-Public Use
  Company Number: None

PATIENT
  Age: 58 Year
  Sex: Female
  Weight: 70.2 kg

DRUGS (4)
  1. TETRACYCLINE HCL 500 MG CAP AVET [Suspect]
     Active Substance: TETRACYCLINE HYDROCHLORIDE
     Indication: HELICOBACTER INFECTION
     Dosage: ?          QUANTITY:1 CAPSULE(S);?
     Route: 048
     Dates: start: 20191226, end: 20200104
  2. VITAMIN D3 GUMMIES [Concomitant]
  3. RAMIPRIL. [Concomitant]
     Active Substance: RAMIPRIL
  4. ATORIVASTATIN [Concomitant]

REACTIONS (5)
  - Deafness unilateral [None]
  - Pruritus genital [None]
  - Ear discomfort [None]
  - Genital rash [None]
  - Tinnitus [None]

NARRATIVE: CASE EVENT DATE: 20191227
